FAERS Safety Report 5292416-9 (Version None)
Quarter: 2007Q2

REPORT INFORMATION
  Report Type: 
  Country: None (occurrence: None)
  Receive Date: 20070410
  Receipt Date: 20070330
  Transmission Date: 20071010
  Serious: Yes (Disabling, Other)
  Sender: FDA-Public Use
  Company Number: US-PFIZER INC-2006124041

PATIENT
  Sex: Female

DRUGS (15)
  1. NORVASC [Suspect]
     Indication: HYPERTENSION
  2. LIPITOR [Suspect]
     Indication: BLOOD CHOLESTEROL INCREASED
  3. LESCOL [Suspect]
     Indication: BLOOD CHOLESTEROL INCREASED
  4. PLETAL [Suspect]
     Indication: INTERMITTENT CLAUDICATION
  5. ZOFRAN [Suspect]
     Indication: NAUSEA
     Route: 042
  6. STATINS [Suspect]
  7. TOPROL-XL [Concomitant]
  8. AMILORIDE HCL AND HYDROCHLOROTHIAZIDE [Concomitant]
  9. LEVOXYL [Concomitant]
  10. ASPIRIN [Concomitant]
  11. CALCIUM WITH VITAMIN D [Concomitant]
  12. STOOL SOFTENER [Concomitant]
  13. OMEGA-3 [Concomitant]
  14. VITAMINS [Concomitant]
  15. DIOVAN HCT [Concomitant]

REACTIONS (10)
  - CEREBROVASCULAR ACCIDENT [None]
  - CORONARY ARTERY DISEASE [None]
  - DEAFNESS UNILATERAL [None]
  - HERNIA [None]
  - INTERMITTENT CLAUDICATION [None]
  - JOINT SWELLING [None]
  - MUSCLE DISORDER [None]
  - NAUSEA [None]
  - PAIN IN EXTREMITY [None]
  - VERTIGO [None]
